FAERS Safety Report 8990524 (Version 2)
Quarter: 2013Q1

REPORT INFORMATION
  Report Type: Report from Study
  Country: US (occurrence: US)
  Receive Date: 20121228
  Receipt Date: 20130103
  Transmission Date: 20140127
  Serious: Yes (Death, Hospitalization)
  Sender: FDA-Public Use
  Company Number: US-ROCHE-1172312

PATIENT
  Sex: Male

DRUGS (1)
  1. OMALIZUMAB [Suspect]
     Indication: INFLAMMATION
     Route: 065
     Dates: end: 200803

REACTIONS (5)
  - Death [Fatal]
  - Chronic obstructive pulmonary disease [Unknown]
  - Emphysema [Unknown]
  - Drug ineffective [Unknown]
  - Pulmonary oedema [Unknown]
